FAERS Safety Report 7281404-9 (Version None)
Quarter: 2011Q1

REPORT INFORMATION
  Report Type: 
  Country: None (occurrence: None)
  Receive Date: 20110208
  Receipt Date: 20110127
  Transmission Date: 20110831
  Serious: Yes (Life-Threatening)
  Sender: FDA-Public Use
  Company Number: JP-ELI_LILLY_AND_COMPANY-JP201012004214

PATIENT
  Sex: Male
  Weight: 48 kg

DRUGS (26)
  1. ARTIST [Concomitant]
     Dosage: 5 MG, DAILY (1/D)
     Dates: start: 20090410
  2. GEMZAR [Suspect]
     Indication: PANCREATIC CARCINOMA
     Dosage: 1200 MG, UNK
     Route: 042
     Dates: start: 20081222, end: 20081229
  3. GEMZAR [Suspect]
     Dosage: 600 MG, UNK
     Route: 042
     Dates: start: 20100823, end: 20100823
  4. MILTAX [Concomitant]
     Dates: start: 20090410
  5. MYSLEE [Concomitant]
     Dosage: 5 MG, DAILY (1/D)
     Dates: start: 20100412
  6. GEMZAR [Suspect]
     Dosage: 1000 MG, UNK
     Route: 042
     Dates: start: 20090112, end: 20100524
  7. GEMZAR [Suspect]
     Dosage: 800 MG, UNK
     Route: 042
     Dates: start: 20100607, end: 20100726
  8. RAMELTEON [Concomitant]
     Dosage: 0.1 MG, AS NEEDED
     Dates: start: 20090216
  9. GASMOTIN [Concomitant]
     Dosage: 5 MG, 3/D
     Dates: start: 20090413
  10. LANTUS [Concomitant]
     Dates: start: 20090731
  11. LASIX [Concomitant]
     Dosage: 20 MG, DAILY (1/D)
     Dates: start: 20090410
  12. PURSENNID /SWE/ [Concomitant]
     Dosage: 12 MG, AS NEEDED
     Dates: start: 20090615
  13. PRIMPERAN TAB [Concomitant]
     Dosage: 5 MG, AS NEEDED
     Dates: start: 20100215
  14. SIGMART [Concomitant]
     Dosage: 5 MG, 3/D
     Dates: start: 20090410
  15. PLETAL [Concomitant]
     Dosage: 100 MG, 2/D
     Dates: start: 20090410
  16. FLIVAS [Concomitant]
     Dosage: 75 MG, DAILY (1/D)
     Dates: start: 20090925
  17. LOXONIN [Concomitant]
     Dosage: 60 MG, AS NEEDED
     Dates: start: 20100809
  18. HUMALOG [Concomitant]
     Dates: start: 20090731
  19. TAKEPRON [Concomitant]
     Dosage: 15 MG, DAILY (1/D)
     Dates: start: 20090216
  20. MAGMITT [Concomitant]
     Dosage: 660 MG, AS NEEDED
     Dates: start: 20090302
  21. TANATRIL [Concomitant]
     Dosage: 5 MG, DAILY (1/D)
     Dates: start: 20090410
  22. FRANDOL [Concomitant]
     Dosage: 20 MG, 2/D
     Dates: start: 20090410
  23. MUCOSTA [Concomitant]
     Dosage: 100 MG, AS NEEDED
     Dates: start: 20100809
  24. GRAN [Concomitant]
     Indication: LEUKAEMIA
     Route: 058
     Dates: start: 20101108, end: 20101121
  25. ASPIRIN [Concomitant]
     Dosage: 100 MG, DAILY (1/D)
     Dates: start: 20090410
  26. PL GRAN. [Concomitant]
     Dosage: 1 G, 3/D
     Dates: start: 20100621

REACTIONS (4)
  - HAEMOGLOBIN DECREASED [None]
  - LEUKAEMIA [None]
  - PLATELET COUNT DECREASED [None]
  - WHITE BLOOD CELL COUNT DECREASED [None]
